FAERS Safety Report 15764809 (Version 4)
Quarter: 2019Q1

REPORT INFORMATION
  Report Type: Report from Study
  Country: AR (occurrence: AR)
  Receive Date: 20181227
  Receipt Date: 20190121
  Transmission Date: 20190417
  Serious: Yes (Life-Threatening, Hospitalization)
  Sender: FDA-Public Use
  Company Number: PHHY2018AR194780

PATIENT
  Age: 13 Year
  Sex: Female

DRUGS (2)
  1. ILARIS [Suspect]
     Active Substance: CANAKINUMAB
     Indication: STILL^S DISEASE
     Dosage: 150 MG, QMO
     Route: 065
     Dates: start: 20180904
  2. ILARIS [Suspect]
     Active Substance: CANAKINUMAB
     Dosage: 150 MG, QMO
     Route: 065
     Dates: start: 20181204

REACTIONS (20)
  - Haemodynamic instability [Unknown]
  - Renal impairment [Unknown]
  - Erythema [Unknown]
  - Conjunctival hyperaemia [Unknown]
  - Metabolic acidosis [Unknown]
  - Infection [Unknown]
  - Condition aggravated [Recovering/Resolving]
  - C-reactive protein increased [Unknown]
  - Cough [Unknown]
  - General physical condition abnormal [Unknown]
  - Blood fibrinogen decreased [Unknown]
  - Still^s disease [Recovering/Resolving]
  - Vomiting [Unknown]
  - Pancytopenia [Unknown]
  - Blood lactate dehydrogenase increased [Unknown]
  - Hypoperfusion [Unknown]
  - Serum ferritin increased [Unknown]
  - Haemophagocytic lymphohistiocytosis [Unknown]
  - Treatment failure [Unknown]
  - Transaminases increased [Unknown]

NARRATIVE: CASE EVENT DATE: 20181219
